FAERS Safety Report 20530765 (Version 1)
Quarter: 2022Q1

REPORT INFORMATION
  Report Type: Report from Study
  Country: US (occurrence: US)
  Receive Date: 20220301
  Receipt Date: 20220301
  Transmission Date: 20220424
  Serious: Yes (Other)
  Sender: FDA-Public Use
  Company Number: US-NOVARTISPH-NVSC2022US043663

PATIENT
  Sex: Female

DRUGS (1)
  1. KISQALI [Suspect]
     Active Substance: RIBOCICLIB
     Indication: Product used for unknown indication
     Dosage: UNK
     Route: 048

REACTIONS (13)
  - Metastases to bone [Unknown]
  - Depression [Recovering/Resolving]
  - Palpitations [Unknown]
  - Decreased appetite [Recovering/Resolving]
  - Nausea [Recovering/Resolving]
  - White blood cell count decreased [Unknown]
  - Anaemia [Unknown]
  - Back pain [Unknown]
  - Constipation [Unknown]
  - Diarrhoea [Unknown]
  - Dyspnoea [Unknown]
  - Dizziness [Unknown]
  - Asthenia [Unknown]
